FAERS Safety Report 6153715-1 (Version None)
Quarter: 2009Q2

REPORT INFORMATION
  Report Type: 
  Country: None (occurrence: None)
  Receive Date: 20090410
  Receipt Date: 20090401
  Transmission Date: 20091009
  Serious: Yes (Other)
  Sender: FDA-Public Use
  Company Number: 2009-00634

PATIENT
  Age: 61 Year
  Sex: Male
  Weight: 80 kg

DRUGS (2)
  1. VELCADE [Suspect]
     Indication: RENAL CANCER METASTATIC
     Dosage: 1.3 MG/M2, IV BOLUS
     Route: 040
     Dates: start: 20090210, end: 20090213
  2. 17-AAG(17-ALLYLAMINO-17-DEMETHOXYGELDANAMYCIN) INFUSION [Suspect]
     Indication: RENAL CANCER METASTATIC
     Dosage: 250 MG/M2,  INTRAVENOUS
     Route: 042

REACTIONS (9)
  - ANGINA PECTORIS [None]
  - ANOREXIA [None]
  - COUGH [None]
  - DIARRHOEA [None]
  - DYSPNOEA [None]
  - NAUSEA [None]
  - NEUROPATHY PERIPHERAL [None]
  - RASH [None]
  - VISION BLURRED [None]
